FAERS Safety Report 18979568 (Version 2)
Quarter: 2021Q4

REPORT INFORMATION
  Report Type: Spontaneous
  Country: US (occurrence: US)
  Receive Date: 20210308
  Receipt Date: 20211007
  Transmission Date: 20220303
  Serious: Yes (Life-Threatening, Hospitalization, Other)
  Sender: FDA-Public Use
  Company Number: US-MICRO LABS LIMITED-ML2021-00655

PATIENT
  Age: 24 Month
  Sex: Female

DRUGS (6)
  1. LEVETIRACETAM [Suspect]
     Active Substance: LEVETIRACETAM
     Indication: Epilepsy
  2. MIDAZOLAM [Concomitant]
     Active Substance: MIDAZOLAM
  3. VALPROIC ACID [Concomitant]
     Active Substance: VALPROIC ACID
  4. CLOBAZAM [Concomitant]
     Active Substance: CLOBAZAM
  5. LORAZEPAM [Concomitant]
     Active Substance: LORAZEPAM
  6. PENTOBARBITAL SODIUM [Concomitant]
     Active Substance: PENTOBARBITAL SODIUM

REACTIONS (3)
  - Seizure [Recovered/Resolved]
  - Status epilepticus [Recovered/Resolved]
  - Drug resistance [Recovered/Resolved]
